FAERS Safety Report 16838956 (Version 1)
Quarter: 2019Q3

REPORT INFORMATION
  Report Type: Other
  Country: CA (occurrence: CA)
  Receive Date: 20190923
  Receipt Date: 20190923
  Transmission Date: 20191005
  Serious: Yes (Other)
  Sender: FDA-Public Use
  Company Number: CA-PFIZER INC-2019405052

PATIENT
  Sex: Male

DRUGS (4)
  1. CIPROFLOXACIN. [Suspect]
     Active Substance: CIPROFLOXACIN
     Dosage: UNK
  2. PIPERACILLIN. [Suspect]
     Active Substance: PIPERACILLIN SODIUM
     Dosage: UNK
  3. CEFEPIME [Suspect]
     Active Substance: CEFEPIME HYDROCHLORIDE
     Dosage: UNK
  4. VANCOMYCIN HCL [Suspect]
     Active Substance: VANCOMYCIN HYDROCHLORIDE
     Dosage: UNK

REACTIONS (4)
  - Bronchospasm [Unknown]
  - Anaphylactic shock [Unknown]
  - Laryngeal oedema [Unknown]
  - Rash pruritic [Unknown]
